FAERS Safety Report 8477225-1 (Version None)
Quarter: 2012Q2

REPORT INFORMATION
  Report Type: 
  Country: None (occurrence: None)
  Receive Date: 20120629
  Receipt Date: 20120620
  Transmission Date: 20120825
  Serious: No
  Sender: FDA-Public Use
  Company Number: JP-SHIRE-ALL1-2012-02988

PATIENT
  Age: 73 Year
  Sex: Male

DRUGS (1)
  1. FOSRENOL [Suspect]
     Indication: HYPERPHOSPHATAEMIA
     Dosage: 2250 MG, OTHER (DIALY DOSE)
     Route: 048
     Dates: start: 20110713

REACTIONS (1)
  - ASPIRATION [None]
